FAERS Safety Report 8620252 (Version 3)
Quarter: 2015Q3

REPORT INFORMATION
  Report Type: Spontaneous
  Country: US (occurrence: US)
  Receive Date: 20120618
  Receipt Date: 20150826
  Transmission Date: 20151125
  Serious: Yes (Hospitalization)
  Sender: FDA-Public Use
  Company Number: US-ASTRAZENECA-2010SE30043

PATIENT
  Age: 694 Month
  Sex: Male
  Weight: 72.6 kg

DRUGS (28)
  1. SEROQUEL [Suspect]
     Active Substance: QUETIAPINE FUMARATE
     Indication: DEPRESSION
     Route: 048
  2. SEROQUEL [Suspect]
     Active Substance: QUETIAPINE FUMARATE
     Indication: DEPRESSION
     Route: 048
  3. SEROQUEL [Suspect]
     Active Substance: QUETIAPINE FUMARATE
     Indication: MAJOR DEPRESSION
     Route: 048
  4. SEROQUEL [Suspect]
     Active Substance: QUETIAPINE FUMARATE
     Indication: SLEEP DISORDER
     Route: 048
  5. SEROQUEL [Suspect]
     Active Substance: QUETIAPINE FUMARATE
     Indication: RELAXATION THERAPY
     Route: 048
  6. SEROQUEL [Suspect]
     Active Substance: QUETIAPINE FUMARATE
     Indication: SLEEP DISORDER
     Route: 048
  7. SEROQUEL [Suspect]
     Active Substance: QUETIAPINE FUMARATE
     Indication: RELAXATION THERAPY
     Route: 048
  8. SEROQUEL [Suspect]
     Active Substance: QUETIAPINE FUMARATE
     Indication: DEPRESSION
     Route: 048
  9. SEROQUEL [Suspect]
     Active Substance: QUETIAPINE FUMARATE
     Indication: SLEEP DISORDER
     Route: 048
  10. SEROQUEL [Suspect]
     Active Substance: QUETIAPINE FUMARATE
     Indication: SLEEP DISORDER
     Route: 048
     Dates: start: 20150615
  11. CORTISONE [Concomitant]
     Active Substance: CORTISONE\HYDROCORTISONE
  12. SEROQUEL [Suspect]
     Active Substance: QUETIAPINE FUMARATE
     Indication: MAJOR DEPRESSION
     Route: 048
  13. SEROQUEL [Suspect]
     Active Substance: QUETIAPINE FUMARATE
     Indication: MAJOR DEPRESSION
     Route: 048
     Dates: start: 2013, end: 20150615
  14. SEROQUEL [Suspect]
     Active Substance: QUETIAPINE FUMARATE
     Indication: DEPRESSION
     Route: 048
     Dates: start: 20150615
  15. WELLBUTRIN [Concomitant]
     Active Substance: BUPROPION HYDROCHLORIDE
     Indication: DEPRESSION
     Route: 048
  16. SEROQUEL [Suspect]
     Active Substance: QUETIAPINE FUMARATE
     Indication: DEPRESSION
     Route: 048
  17. SEROQUEL [Suspect]
     Active Substance: QUETIAPINE FUMARATE
     Indication: RELAXATION THERAPY
     Route: 048
  18. SEROQUEL [Suspect]
     Active Substance: QUETIAPINE FUMARATE
     Indication: MAJOR DEPRESSION
     Route: 048
  19. SEROQUEL [Suspect]
     Active Substance: QUETIAPINE FUMARATE
     Indication: DEPRESSION
     Route: 048
     Dates: start: 2013, end: 20150615
  20. SEROQUEL [Suspect]
     Active Substance: QUETIAPINE FUMARATE
     Indication: MAJOR DEPRESSION
     Route: 048
     Dates: start: 20150615
  21. AMBIEN [Concomitant]
     Active Substance: ZOLPIDEM TARTRATE
     Indication: SLEEP DISORDER
     Route: 048
     Dates: start: 2010
  22. SEROQUEL [Suspect]
     Active Substance: QUETIAPINE FUMARATE
     Indication: MAJOR DEPRESSION
     Route: 048
  23. SEROQUEL [Suspect]
     Active Substance: QUETIAPINE FUMARATE
     Indication: SLEEP DISORDER
     Route: 048
     Dates: start: 2013, end: 20150615
  24. SEROQUEL [Suspect]
     Active Substance: QUETIAPINE FUMARATE
     Indication: RELAXATION THERAPY
     Route: 048
     Dates: start: 2013, end: 20150615
  25. SEROQUEL [Suspect]
     Active Substance: QUETIAPINE FUMARATE
     Indication: SLEEP DISORDER
     Route: 048
  26. SEROQUEL [Suspect]
     Active Substance: QUETIAPINE FUMARATE
     Indication: RELAXATION THERAPY
     Route: 048
  27. SEROQUEL [Suspect]
     Active Substance: QUETIAPINE FUMARATE
     Indication: RELAXATION THERAPY
     Route: 048
     Dates: start: 20150615
  28. TRAZODONE [Concomitant]
     Active Substance: TRAZODONE HYDROCHLORIDE
     Indication: PAIN
     Dosage: 200 MG IN THE MORNING, 200 MG AS REQUIRED IN AFTERNOON, 100 MG AT BEDTIME
     Route: 048

REACTIONS (8)
  - Weight decreased [Unknown]
  - Drug dose omission [Unknown]
  - Pain [Unknown]
  - Arthritis [Unknown]
  - Major depression [Unknown]
  - Malaise [Unknown]
  - Male orgasmic disorder [Unknown]
  - Sexual dysfunction [Not Recovered/Not Resolved]

NARRATIVE: CASE EVENT DATE: 201112
